FAERS Safety Report 10056745 (Version 1)
Quarter: 2014Q2

REPORT INFORMATION
  Report Type: Spontaneous
  Country: US (occurrence: US)
  Receive Date: 20140403
  Receipt Date: 20140403
  Transmission Date: 20141212
  Serious: Yes (Life-Threatening, Hospitalization, Disabling, Other)
  Sender: FDA-Public Use
  Company Number: US-GLAXOSMITHKLINE-A1066711A

PATIENT
  Age: 64 Year
  Sex: Male

DRUGS (4)
  1. ADVAIR HFA [Suspect]
     Indication: CHRONIC OBSTRUCTIVE PULMONARY DISEASE
     Dosage: 1PUFF TWICE PER DAY
     Route: 055
  2. VENTOLIN [Suspect]
     Dosage: 2PUFF AS REQUIRED
     Route: 055
  3. LOSARTAN [Concomitant]
  4. DILANTIN [Concomitant]

REACTIONS (9)
  - Pleural effusion [Unknown]
  - Cardiomyopathy [Unknown]
  - Aspiration pleural cavity [Unknown]
  - Respiratory failure [Unknown]
  - Hypoxia [Unknown]
  - Oxygen saturation decreased [Unknown]
  - Dyspnoea exertional [Unknown]
  - Oedema peripheral [Unknown]
  - Asthenia [Unknown]
